FAERS Safety Report 14015988 (Version 1)
Quarter: 2017Q3

REPORT INFORMATION
  Report Type: Spontaneous
  Country: US (occurrence: US)
  Receive Date: 20170927
  Receipt Date: 20170927
  Transmission Date: 20171128
  Serious: Yes (Other)
  Sender: FDA-Public Use
  Company Number: US-REGENERON PHARMACEUTICALS, INC.-2017-22511

PATIENT

DRUGS (2)
  1. EYLEA [Suspect]
     Active Substance: AFLIBERCEPT
     Indication: NEOVASCULAR AGE-RELATED MACULAR DEGENERATION
     Dosage: OU
     Route: 031
     Dates: start: 20170919
  2. EYLEA [Suspect]
     Active Substance: AFLIBERCEPT
     Dosage: OU, LAST PRIOR TO EVENT
     Route: 031
     Dates: start: 20170919, end: 20170919

REACTIONS (2)
  - Ocular hyperaemia [Unknown]
  - Eye haemorrhage [Unknown]

NARRATIVE: CASE EVENT DATE: 20170919
